FAERS Safety Report 8810684 (Version 1)
Quarter: 2012Q4

REPORT INFORMATION
  Report Type: Spontaneous
  Country: NL (occurrence: None)
  Receive Date: 20120920
  Receipt Date: 20120920
  Transmission Date: 20130627
  Serious: Yes (Other)
  Sender: FDA-Public Use
  Company Number: 2012/134

PATIENT
  Age: 12 Year
  Sex: Female

DRUGS (1)
  1. VALPROIC ACID [Suspect]
     Indication: FOCAL EPILEPSY

REACTIONS (8)
  - Oppositional defiant disorder [None]
  - Agitation [None]
  - Tachyphrenia [None]
  - Psychotic disorder [None]
  - Drug withdrawal syndrome [None]
  - Hallucination, auditory [None]
  - Hallucination, visual [None]
  - Menorrhagia [None]
